FAERS Safety Report 20950106 (Version 1)
Quarter: 2022Q2

REPORT INFORMATION
  Report Type: Spontaneous
  Country: US (occurrence: US)
  Receive Date: 20220613
  Receipt Date: 20220613
  Transmission Date: 20220721
  Serious: Yes (Other)
  Sender: FDA-Public Use
  Company Number: US-STRIDES ARCOLAB LIMITED-2021SP025247

PATIENT
  Sex: Female

DRUGS (20)
  1. CEPHALEXIN [Suspect]
     Active Substance: CEPHALEXIN
     Indication: Product used for unknown indication
     Dosage: UNK
     Route: 064
  2. HYDROCORTISONE [Suspect]
     Active Substance: HYDROCORTISONE
     Indication: Adrenocortical insufficiency acute
     Dosage: 1 MILLIGRAM/KILOGRAM PER DOSE, EVERY 8 HRS
     Route: 065
  3. HYDROCORTISONE [Suspect]
     Active Substance: HYDROCORTISONE
     Indication: Staphylococcal bacteraemia
  4. AZITHROMYCIN [Suspect]
     Active Substance: AZITHROMYCIN
     Indication: Product used for unknown indication
     Dosage: UNK
     Route: 064
  5. NAFCILLIN [Concomitant]
     Active Substance: NAFCILLIN SODIUM
     Indication: Staphylococcal bacteraemia
     Dosage: 50MG/KG/DAY DIVIDED EVERY 12 HOURS (TWO ADMINISTRATION; STARTED ON DAY 12 OF LIFE)
     Route: 065
  6. NAFCILLIN [Concomitant]
     Active Substance: NAFCILLIN SODIUM
     Dosage: 99MG/KG/DAY (STARTED ON DAY 13 OF LIFE)
     Route: 065
  7. NAFCILLIN [Concomitant]
     Active Substance: NAFCILLIN SODIUM
     Dosage: 200 MG/KG/DAY EVERY 8 HOURS ON DAY 15 OF LIFE
     Route: 065
  8. RIFAMPIN [Concomitant]
     Active Substance: RIFAMPIN
     Indication: Staphylococcal bacteraemia
     Dosage: 10MG/KG/DAY EVERY 12 HOURS (STARTED ON DAY 14 OF LIFE)
     Route: 065
  9. CALCIUM GLUCONATE [Concomitant]
     Active Substance: CALCIUM GLUCONATE
     Indication: Hyperkalaemia
     Dosage: UNK
     Route: 065
  10. SODIUM BICARBONATE [Concomitant]
     Active Substance: SODIUM BICARBONATE
     Indication: Hyperkalaemia
     Dosage: UNK
     Route: 065
  11. FUROSEMIDE [Concomitant]
     Active Substance: FUROSEMIDE
     Indication: Hyperkalaemia
     Dosage: UNK
     Route: 065
  12. INSULIN NOS [Concomitant]
     Active Substance: INSULIN NOS
     Indication: Hyperkalaemia
     Dosage: UNK
     Route: 065
  13. DEXTROSE [Concomitant]
     Active Substance: DEXTROSE
     Indication: Hyperkalaemia
     Dosage: UNK
     Route: 065
  14. DOPAMINE [Concomitant]
     Active Substance: DOPAMINE HYDROCHLORIDE
     Indication: Vasopressive therapy
     Dosage: UNK
     Route: 065
  15. AMPICILLIN [Concomitant]
     Active Substance: AMPICILLIN
     Indication: Antibiotic therapy
     Dosage: UNK
     Route: 065
  16. AMPICILLIN [Concomitant]
     Active Substance: AMPICILLIN
     Indication: Evidence based treatment
  17. GENTAMICIN [Concomitant]
     Active Substance: GENTAMICIN
     Indication: Antibiotic therapy
     Dosage: UNK
     Route: 065
  18. GENTAMICIN [Concomitant]
     Active Substance: GENTAMICIN
     Indication: Evidence based treatment
  19. VANCOMYCIN [Concomitant]
     Active Substance: VANCOMYCIN
     Indication: Antibiotic therapy
     Dosage: UNK
     Route: 065
  20. VANCOMYCIN [Concomitant]
     Active Substance: VANCOMYCIN
     Indication: Evidence based treatment

REACTIONS (3)
  - Staphylococcal bacteraemia [Recovered/Resolved]
  - Condition aggravated [Recovered/Resolved]
  - Foetal exposure during pregnancy [Unknown]
